FAERS Safety Report 5007259-0 (Version None)
Quarter: 2006Q2

REPORT INFORMATION
  Report Type: 
  Country: None (occurrence: None)
  Receive Date: 20060518
  Receipt Date: 20060518
  Transmission Date: 20061013
  Serious: Yes (Disabling)
  Sender: FDA-Public Use
  Company Number: None

PATIENT
  Age: 68 Year
  Sex: Male
  Weight: 93.8946 kg

DRUGS (2)
  1. ZOCOR [Suspect]
     Indication: CARDIAC DISORDER
     Dates: start: 20020915, end: 20060517
  2. ZOCOR [Suspect]
     Indication: HYPERLIPIDAEMIA
     Dates: start: 20020915, end: 20060517

REACTIONS (1)
  - MYOSITIS [None]
